FAERS Safety Report 17266771 (Version 1)
Quarter: 2020Q1

REPORT INFORMATION
  Report Type: Spontaneous
  Country: US (occurrence: US)
  Receive Date: 20200113
  Receipt Date: 20200113
  Transmission Date: 20200409
  Serious: Yes (Death)
  Sender: FDA-Public Use
  Company Number: None

PATIENT
  Age: 72 Year
  Sex: Female
  Weight: 51.75 kg

DRUGS (20)
  1. NAPROXEN. [Concomitant]
     Active Substance: NAPROXEN
  2. FOLIC ACID. [Concomitant]
     Active Substance: FOLIC ACID
  3. PROCHLORPERAZINE. [Concomitant]
     Active Substance: PROCHLORPERAZINE
  4. METOPROLOL. [Concomitant]
     Active Substance: METOPROLOL
  5. SYSTANE (POLYETHYLENE GLYCOL 400\PROPYLENE GLYCOL) [Concomitant]
     Active Substance: POLYETHYLENE GLYCOL 400\PROPYLENE GLYCOL
  6. CALCIUM CARBONATE. [Concomitant]
     Active Substance: CALCIUM CARBONATE
  7. CRANBERRY. [Concomitant]
     Active Substance: CRANBERRY
  8. HCTZ [Concomitant]
     Active Substance: HYDROCHLOROTHIAZIDE
  9. MONTELUKAST [Concomitant]
     Active Substance: MONTELUKAST SODIUM
  10. NYSTATIN. [Concomitant]
     Active Substance: NYSTATIN
  11. PIQRAY [Suspect]
     Active Substance: ALPELISIB
     Indication: BREAST CANCER FEMALE
     Route: 048
     Dates: start: 20191016, end: 20200110
  12. MVI [Concomitant]
     Active Substance: VITAMINS
  13. VESICARE [Concomitant]
     Active Substance: SOLIFENACIN SUCCINATE
  14. ZOFRAN [Concomitant]
     Active Substance: ONDANSETRON HYDROCHLORIDE
  15. PERIDEX [Concomitant]
     Active Substance: CHLORHEXIDINE GLUCONATE
  16. ALVESCO [Concomitant]
     Active Substance: CICLESONIDE
  17. FAMOTIDINE. [Concomitant]
     Active Substance: FAMOTIDINE
  18. JUBLIA [Concomitant]
     Active Substance: EFINACONAZOLE
  19. POTASSIUM CHLORIDE. [Concomitant]
     Active Substance: POTASSIUM CHLORIDE
  20. FEXOFENADINE [Concomitant]
     Active Substance: FEXOFENADINE HYDROCHLORIDE

REACTIONS (1)
  - Death [None]

NARRATIVE: CASE EVENT DATE: 20200110
